FAERS Safety Report 13647061 (Version 1)
Quarter: 2017Q2

REPORT INFORMATION
  Report Type: Spontaneous
  Country: CH (occurrence: BR)
  Receive Date: 20170613
  Receipt Date: 20170613
  Transmission Date: 20170830
  Serious: Yes (Death, Hospitalization)
  Sender: FDA-Public Use
  Company Number: CH-LPDUSPRD-20170749

PATIENT
  Age: 90 Year
  Sex: Female

DRUGS (1)
  1. FERINJECT [Suspect]
     Active Substance: FERRIC CARBOXYMALTOSE
     Dosage: 2 AMPOULES
     Route: 042
     Dates: start: 20150624, end: 20170403

REACTIONS (2)
  - Fall [Fatal]
  - Rib fracture [Fatal]

NARRATIVE: CASE EVENT DATE: 20170427
